FAERS Safety Report 5951270-X (Version None)
Quarter: 2008Q4

REPORT INFORMATION
  Report Type: 
  Country: None (occurrence: None)
  Receive Date: 20081113
  Receipt Date: 20081112
  Transmission Date: 20090506
  Serious: Yes (Hospitalization)
  Sender: FDA-Public Use
  Company Number: RU-BRISTOL-MYERS SQUIBB COMPANY-14404321

PATIENT
  Age: 43 Year
  Sex: Male

DRUGS (2)
  1. CARBOPLATIN [Suspect]
     Indication: NON-SMALL CELL LUNG CANCER
     Dosage: 1 DOSAGE FORM =3 AUC. FIRST DOSE OF CARBOPLATIN GIVEN ON 24-JUL-08 (6 AUC)
     Route: 042
     Dates: start: 20081030, end: 20081030
  2. ABRAXANE [Suspect]
     Indication: NON-SMALL CELL LUNG CANCER
     Dosage: FIRST DOSE WAS GIVEN ON 24-JUL-08 (100 MG/M2)
     Route: 042
     Dates: start: 20081030, end: 20081030

REACTIONS (1)
  - ATRIAL FIBRILLATION [None]
